FAERS Safety Report 12763389 (Version 1)
Quarter: 2016Q3

REPORT INFORMATION
  Report Type: Spontaneous
  Country: JP (occurrence: JP)
  Receive Date: 20160920
  Receipt Date: 20160920
  Transmission Date: 20161109
  Serious: Yes (Other)
  Sender: FDA-Public Use
  Company Number: JP-AMGEN-JPNSP2016125104

PATIENT
  Age: 61 Year
  Sex: Female

DRUGS (1)
  1. ENBREL [Suspect]
     Active Substance: ETANERCEPT
     Indication: PRODUCT USED FOR UNKNOWN INDICATION
     Dosage: 50 MG, WEEKLY, EVERY TUESDAY
     Route: 058
     Dates: start: 20160523

REACTIONS (3)
  - Condition aggravated [Unknown]
  - Pyrexia [Unknown]
  - Cataract [Unknown]

NARRATIVE: CASE EVENT DATE: 20160906
